FAERS Safety Report 19413836 (Version 1)
Quarter: 2021Q2

REPORT INFORMATION
  Report Type: Spontaneous
  Country: US (occurrence: US)
  Receive Date: 20210614
  Receipt Date: 20210614
  Transmission Date: 20210717
  Serious: No
  Sender: FDA-Public Use
  Company Number: US-JNJFOC-20210625433

PATIENT
  Sex: Male

DRUGS (3)
  1. NIZORAL [Suspect]
     Active Substance: KETOCONAZOLE
     Indication: DANDRUFF
     Dosage: 3 TIMES IN APPROXIMATELY A WEEK AND A HALF
     Route: 061
  2. NIZORAL [Suspect]
     Active Substance: KETOCONAZOLE
     Indication: SKIN EXFOLIATION
  3. NIZORAL [Suspect]
     Active Substance: KETOCONAZOLE
     Indication: PRURITUS

REACTIONS (4)
  - Hair texture abnormal [Not Recovered/Not Resolved]
  - Dandruff [Unknown]
  - Condition aggravated [Unknown]
  - Drug ineffective [Unknown]
